FAERS Safety Report 7170405-7 (Version None)
Quarter: 2010Q4

REPORT INFORMATION
  Report Type: 
  Country: None (occurrence: None)
  Receive Date: 20101214
  Receipt Date: 20101214
  Transmission Date: 20110411
  Serious: Yes (Life-Threatening, Hospitalization)
  Sender: FDA-Public Use
  Company Number: None

PATIENT
  Age: 25 Year
  Sex: Female
  Weight: 54.4316 kg

DRUGS (2)
  1. LAMICTAL [Suspect]
     Indication: BIPOLAR DISORDER
     Dosage: DA PO   TOOK 2 1/2 WKS
     Route: 048
  2. ANTABUSE [Suspect]
     Dosage: DA  PO  TOOK 4 DAYS LONGER #1
     Route: 048

REACTIONS (2)
  - ACUTE HEPATIC FAILURE [None]
  - RASH [None]
